FAERS Safety Report 8351087-5 (Version None)
Quarter: 2012Q2

REPORT INFORMATION
  Report Type: 
  Country: None (occurrence: None)
  Receive Date: 20120510
  Receipt Date: 20120504
  Transmission Date: 20120825
  Serious: Yes (Life-Threatening, Hospitalization, Congenital Anomaly)
  Sender: FDA-Public Use
  Company Number: GXKR2012DE001650

PATIENT
  Sex: Female
  Weight: 0.82 kg

DRUGS (2)
  1. SERTRALINE HYDROCHLORIDE [Suspect]
     Dosage: MATERNAL DOSE: 100 MG DAILY
     Route: 064
     Dates: start: 20110331, end: 20110816
  2. SERTRALINE HYDROCHLORIDE [Suspect]
     Dosage: MATERNAL DOSE: 150 MG, DAILY
     Route: 064
     Dates: start: 20110817

REACTIONS (11)
  - RETINOPATHY [None]
  - FOETAL EXPOSURE DURING PREGNANCY [None]
  - BRONCHOPULMONARY DYSPLASIA [None]
  - INFANTILE APNOEIC ATTACK [None]
  - VENTRICULAR SEPTAL DEFECT [None]
  - PREMATURE BABY [None]
  - PATENT DUCTUS ARTERIOSUS [None]
  - NEONATAL RESPIRATORY DISTRESS SYNDROME [None]
  - BRADYCARDIA NEONATAL [None]
  - NEPHROCALCINOSIS [None]
  - HYPOTENSION [None]
